FAERS Safety Report 25852040 (Version 3)
Quarter: 2025Q4

REPORT INFORMATION
  Report Type: Report from Study
  Country: BR (occurrence: BR)
  Receive Date: 20250926
  Receipt Date: 20251118
  Transmission Date: 20260118
  Serious: Yes (Other)
  Sender: NOVO NORDISK
  Company Number: BR-NOVOPROD-1527569

PATIENT
  Age: 65 Year
  Sex: Female

DRUGS (6)
  1. GLIFAGE [Concomitant]
     Active Substance: METFORMIN HYDROCHLORIDE
     Indication: Type 2 diabetes mellitus
     Dosage: 500 MG, QID(2 TABLETS IN THE MORNING AND 2 TABLETS AT NIGHT)
  2. SPIRONOLACTONE [Concomitant]
     Active Substance: SPIRONOLACTONE
     Indication: Hypertension
     Dosage: 25 MG, QD(1 TABLET IN THE MORNING)
  3. ROSUVASTATIN [Concomitant]
     Active Substance: ROSUVASTATIN
     Indication: Hypertension
     Dosage: 5 MG, BID(1 TABLET IN THE MORNING AND 1 TABLET AT NIGHT)
  4. LOSARTAN POTASSIUM [Concomitant]
     Active Substance: LOSARTAN POTASSIUM
     Indication: Hypertension
     Dosage: 50 MG, QD(1 TABLET IN THE MORNING)
  5. XULTOPHY 100/3.6 [Suspect]
     Active Substance: INSULIN DEGLUDEC\LIRAGLUTIDE
     Indication: Type 2 diabetes mellitus
     Dosage: 22 IU
     Dates: start: 2024
  6. XULTOPHY 100/3.6 [Suspect]
     Active Substance: INSULIN DEGLUDEC\LIRAGLUTIDE
     Dosage: 32 IU (ADDITIONAL 10 UNITS)
     Dates: start: 20250910

REACTIONS (5)
  - Blood glucose increased [Not Recovered/Not Resolved]
  - Device failure [Unknown]
  - Device leakage [Unknown]
  - Device malfunction [Unknown]
  - Product storage error [Unknown]

NARRATIVE: CASE EVENT DATE: 20250910
